FAERS Safety Report 10562490 (Version 1)
Quarter: 2014Q4

REPORT INFORMATION
  Report Type: Spontaneous
  Country: US (occurrence: None)
  Receive Date: 20141103
  Receipt Date: 20141103
  Transmission Date: 20150529
  Serious: Yes (Other)
  Sender: FDA-Public Use
  Company Number: None

PATIENT
  Age: 66 Year
  Sex: Male
  Weight: 103.2 kg

DRUGS (1)
  1. IODIXANOL [Suspect]
     Active Substance: IODIXANOL
     Indication: ANGIOGRAM
     Dates: start: 20130206, end: 20130206

REACTIONS (7)
  - Dizziness [None]
  - Nausea [None]
  - Hyperhidrosis [None]
  - Rash [None]
  - Vomiting [None]
  - Presyncope [None]
  - Flushing [None]

NARRATIVE: CASE EVENT DATE: 20130206
